FAERS Safety Report 23592059 (Version 10)
Quarter: 2024Q4

REPORT INFORMATION
  Report Type: Report from Study
  Country: US (occurrence: US)
  Receive Date: 20240304
  Receipt Date: 20241004
  Transmission Date: 20250115
  Serious: Yes (Death)
  Sender: PFIZER
  Company Number: US-PFIZER INC-PV202300196002

PATIENT
  Age: 53 Year
  Sex: Male

DRUGS (7)
  1. INVESTIGATIONAL PRODUCT [Suspect]
     Active Substance: INVESTIGATIONAL PRODUCT
     Indication: Immunisation
     Dosage: DOSE 1, SINGLE
     Route: 030
     Dates: start: 20230724, end: 20230724
  2. INVESTIGATIONAL PRODUCT [Suspect]
     Active Substance: INVESTIGATIONAL PRODUCT
     Indication: Immunisation
     Dosage: DOSE 1, SINGLE
     Route: 030
     Dates: start: 20230724, end: 20230724
  3. FENTANYL CITRATE [Suspect]
     Active Substance: FENTANYL CITRATE
     Dosage: UNK
  4. ALCOHOL [Suspect]
     Active Substance: ALCOHOL
     Dosage: UNK
  5. SERTRALINE [Concomitant]
     Active Substance: SERTRALINE HYDROCHLORIDE
     Indication: Depression
     Dosage: 25 MG, 1X/DAY
     Route: 048
     Dates: start: 2021
  6. TRAZODONE [Concomitant]
     Active Substance: TRAZODONE HYDROCHLORIDE
     Indication: Anxiety
     Dosage: 100 MG, 1X/DAY
     Route: 048
     Dates: start: 2021
  7. HYDROXYZINE [Concomitant]
     Active Substance: HYDROXYZINE HYDROCHLORIDE
     Indication: Anxiety
     Dosage: 25 MG, 1X/DAY
     Route: 048
     Dates: start: 2021

REACTIONS (2)
  - Accidental overdose [Fatal]
  - Alcohol poisoning [Fatal]

NARRATIVE: CASE EVENT DATE: 20231127
